FAERS Safety Report 26217054 (Version 1)
Quarter: 2025Q4

REPORT INFORMATION
  Report Type: Spontaneous
  Country: IN (occurrence: IN)
  Receive Date: 20251231
  Receipt Date: 20251231
  Transmission Date: 20260118
  Serious: Yes (Death, Other)
  Sender: MACLEODS
  Company Number: IN-MLMSERVICE-20251216-PI665543-00266-1

PATIENT

DRUGS (5)
  1. POTASSIUM CHLORIDE [Suspect]
     Active Substance: POTASSIUM CHLORIDE
     Indication: Product used for unknown indication
     Route: 042
  2. ONDANSETRON [Concomitant]
     Active Substance: ONDANSETRON
     Indication: Product used for unknown indication
     Route: 042
  3. SALINE [Concomitant]
     Active Substance: SODIUM CHLORIDE
     Indication: Product used for unknown indication
     Dosage: 500ML BOLUS FOLLOWED BY 100ML/HR TO MAINTAIN PLASMA VOLUME
     Route: 065
  4. SALINE [Concomitant]
     Active Substance: SODIUM CHLORIDE
     Dosage: 500ML BOLUS FOLLOWED BY 100ML/HR TO MAINTAIN PLASMA VOLUME
     Route: 065
  5. ACETAMINOPHEN [Concomitant]
     Active Substance: ACETAMINOPHEN
     Indication: Abdominal pain
     Route: 065

REACTIONS (6)
  - Cardiac arrest [Fatal]
  - Acute kidney injury [Fatal]
  - Multiple organ dysfunction syndrome [Fatal]
  - Foetal death [Unknown]
  - Injection site pain [Unknown]
  - Maternal exposure during pregnancy [Unknown]
